FAERS Safety Report 23260171 (Version 2)
Quarter: 2023Q4

REPORT INFORMATION
  Report Type: Spontaneous
  Country: BR (occurrence: BR)
  Receive Date: 20231204
  Receipt Date: 20231219
  Transmission Date: 20240110
  Serious: Yes (Other)
  Sender: FDA-Public Use
  Company Number: BR-MLMSERVICE-20231122-4683031-1

PATIENT
  Age: 86 Year
  Sex: Male

DRUGS (2)
  1. ESCITALOPRAM [Suspect]
     Active Substance: ESCITALOPRAM OXALATE
     Indication: Mantle cell lymphoma recurrent
     Route: 065
  2. ACALABRUTINIB [Suspect]
     Active Substance: ACALABRUTINIB
     Indication: Mantle cell lymphoma recurrent
     Route: 065

REACTIONS (5)
  - Skin atrophy [Unknown]
  - Drug interaction [Unknown]
  - Product use in unapproved indication [Unknown]
  - Dermatoporosis [Unknown]
  - Ischaemia [Unknown]
